FAERS Safety Report 4636644-1 (Version None)
Quarter: 2005Q2

REPORT INFORMATION
  Report Type: 
  Country: None (occurrence: None)
  Receive Date: 20050414
  Receipt Date: 20050331
  Transmission Date: 20051028
  Serious: Yes (Other)
  Sender: FDA-Public Use
  Company Number: FR-2005-002016

PATIENT

DRUGS (1)
  1. BETAFERON 250 UG, 500 UG AND COPAXONE INJECTION, 500 UG [Suspect]
     Indication: MULTIPLE SCLEROSIS
     Dosage: 250 UG OR 500 UG, EVERY 2D, SUBCUTANEOUS
     Route: 058
     Dates: start: 20040930, end: 20050208

REACTIONS (5)
  - ABDOMINAL PAIN [None]
  - BLOOD ALKALINE PHOSPHATASE INCREASED [None]
  - DRUG TOXICITY [None]
  - GAMMA-GLUTAMYLTRANSFERASE INCREASED [None]
  - TRANSAMINASES INCREASED [None]
